FAERS Safety Report 4828524-3 (Version None)
Quarter: 2005Q4

REPORT INFORMATION
  Report Type: 
  Country: None (occurrence: None)
  Receive Date: 20051110
  Receipt Date: 20051028
  Transmission Date: 20060501
  Serious: Yes (Hospitalization, Other)
  Sender: FDA-Public Use
  Company Number: 2005150109

PATIENT
  Sex: Female
  Weight: 90.7194 kg

DRUGS (11)
  1. CELEBREX [Suspect]
     Indication: ARTHRALGIA
     Dosage: 200 MG (200 MG, AS NECESSARY), ORAL
     Route: 048
     Dates: start: 20050601, end: 20050701
  2. CELEBREX [Suspect]
     Indication: OSTEOARTHRITIS
     Dosage: 200 MG (200 MG, AS NECESSARY), ORAL
     Route: 048
     Dates: start: 20050601, end: 20050701
  3. BEXTRA [Suspect]
     Indication: ARTHRALGIA
     Dosage: 10 MG
     Dates: start: 20040101
  4. BEXTRA [Suspect]
     Indication: ARTHRITIS
     Dosage: 10 MG
     Dates: start: 20040101
  5. TAZORAC [Suspect]
     Indication: PSORIASIS
     Dosage: TOPICAL
     Route: 061
     Dates: start: 20050701, end: 20050701
  6. HALOBETASOL PROPIONATE [Suspect]
     Indication: PSORIASIS
     Dosage: TOPICAL
     Route: 061
     Dates: start: 20050701, end: 20050701
  7. NABUMETONE [Concomitant]
  8. PREDNISONE [Concomitant]
  9. AVALIDE [Concomitant]
  10. METHYLDOPA [Concomitant]
  11. VERELAN PM [Concomitant]

REACTIONS (9)
  - CHEST PAIN [None]
  - CONDITION AGGRAVATED [None]
  - HEPATIC ENZYME INCREASED [None]
  - NASOPHARYNGITIS [None]
  - OSTEOARTHRITIS [None]
  - PSORIASIS [None]
  - PSORIATIC ARTHROPATHY [None]
  - TROPONIN INCREASED [None]
  - VARICOSE VEIN [None]
